FAERS Safety Report 5768761-7 (Version None)
Quarter: 2008Q2

REPORT INFORMATION
  Report Type: 
  Country: None (occurrence: None)
  Receive Date: 20080610
  Receipt Date: 20080518
  Transmission Date: 20081010
  Serious: Yes (Other)
  Sender: FDA-Public Use
  Company Number: AT200805003840

PATIENT
  Age: 70 Year
  Sex: Female
  Weight: 67 kg

DRUGS (14)
  1. ZYPREXA [Suspect]
     Indication: BIPOLAR DISORDER
     Dosage: 10 MG, DAILY(1/D); 7.5 MG, DAILY (1/D); 5 MG, DAILY (1/D); 2.5 MG, DAILY (1/D)
     Dates: start: 20070101, end: 20080326
  2. ZYPREXA [Suspect]
     Indication: BIPOLAR DISORDER
     Dosage: 10 MG, DAILY(1/D); 7.5 MG, DAILY (1/D); 5 MG, DAILY (1/D); 2.5 MG, DAILY (1/D)
     Dates: start: 20080327, end: 20080328
  3. ZYPREXA [Suspect]
     Indication: BIPOLAR DISORDER
     Dosage: 10 MG, DAILY(1/D); 7.5 MG, DAILY (1/D); 5 MG, DAILY (1/D); 2.5 MG, DAILY (1/D)
     Dates: start: 20080329, end: 20080401
  4. ZYPREXA [Suspect]
     Indication: BIPOLAR DISORDER
     Dosage: 10 MG, DAILY(1/D); 7.5 MG, DAILY (1/D); 5 MG, DAILY (1/D); 2.5 MG, DAILY (1/D)
     Dates: start: 20080402, end: 20080402
  5. CYMBALTA [Suspect]
     Dosage: 120 MG, DAILY (1/D); 90 MG, DAILY (1/D); 60 MG, DAILY (1/D); 30 MG, DAILY (1/D)
     Dates: start: 20080101, end: 20080326
  6. CYMBALTA [Suspect]
     Dosage: 120 MG, DAILY (1/D); 90 MG, DAILY (1/D); 60 MG, DAILY (1/D); 30 MG, DAILY (1/D)
     Dates: start: 20080327, end: 20080331
  7. CYMBALTA [Suspect]
     Dosage: 120 MG, DAILY (1/D); 90 MG, DAILY (1/D); 60 MG, DAILY (1/D); 30 MG, DAILY (1/D)
     Dates: start: 20080401, end: 20080404
  8. CYMBALTA [Suspect]
     Dosage: 120 MG, DAILY (1/D); 90 MG, DAILY (1/D); 60 MG, DAILY (1/D); 30 MG, DAILY (1/D)
     Dates: start: 20080405, end: 20080407
  9. QUILONORM/AUT/(LITHIUM ACETATE) [Concomitant]
  10. REMERON [Concomitant]
  11. TRILEPTAL [Concomitant]
  12. NEXIUM [Concomitant]
  13. CONCOR /00802602/(BISOPROLOL FUMARATE) [Concomitant]
  14. THYREX (LEVOTHYXROXINE SODIUM) [Concomitant]

REACTIONS (4)
  - BLOOD CHOLESTEROL INCREASED [None]
  - BLOOD TRIGLYCERIDES INCREASED [None]
  - DIABETES MELLITUS [None]
  - TOTAL CHOLESTEROL/HDL RATIO INCREASED [None]
